FAERS Safety Report 5422333-2 (Version None)
Quarter: 2007Q3

REPORT INFORMATION
  Report Type: 
  Country: None (occurrence: None)
  Receive Date: 20070822
  Receipt Date: 20070723
  Transmission Date: 20080115
  Serious: No
  Sender: FDA-Public Use
  Company Number: US-JNJFOC-20070705640

PATIENT
  Age: 44 Year
  Sex: Female

DRUGS (1)
  1. INVEGA [Suspect]
     Indication: DRUG USE FOR UNKNOWN INDICATION
     Route: 048

REACTIONS (3)
  - FATIGUE [None]
  - OEDEMA PERIPHERAL [None]
  - PAIN [None]
